FAERS Safety Report 14080056 (Version 1)
Quarter: 2017Q4

REPORT INFORMATION
  Report Type: Spontaneous
  Country: US (occurrence: US)
  Receive Date: 20171012
  Receipt Date: 20171012
  Transmission Date: 20180321
  Serious: No
  Sender: FDA-Public Use
  Company Number: US-MYLANLABS-2017M1027396

PATIENT
  Sex: Female
  Weight: 102.4 kg

DRUGS (4)
  1. FENTANYL. [Suspect]
     Active Substance: FENTANYL
     Indication: PAIN
     Dosage: 25 ?G, UNK
     Route: 062
  2. FENTANYL. [Suspect]
     Active Substance: FENTANYL
     Dosage: 25 ?G, UNK
     Route: 062
  3. FENTANYL. [Suspect]
     Active Substance: FENTANYL
     Dosage: 37.5 ?G, UNK
     Route: 062
  4. FENTANYL. [Suspect]
     Active Substance: FENTANYL
     Dosage: 12.5 ?G, QH, CHANGE Q72H
     Route: 062

REACTIONS (1)
  - Withdrawal syndrome [Not Recovered/Not Resolved]
